FAERS Safety Report 9253884 (Version 2)
Quarter: 2013Q2

REPORT INFORMATION
  Report Type: Spontaneous
  Country: US (occurrence: US)
  Receive Date: 20130425
  Receipt Date: 20130503
  Transmission Date: 20140414
  Serious: Yes (Hospitalization, Other)
  Sender: FDA-Public Use
  Company Number: US-ENDO PHARMACEUTICALS INC.-OPCR20130175

PATIENT
  Age: 26 Year
  Sex: Male

DRUGS (1)
  1. OPANA ER [Suspect]
     Indication: DRUG ABUSE
     Dosage: UNKNOWN
     Dates: start: 201303, end: 201304

REACTIONS (4)
  - Thrombotic thrombocytopenic purpura [Recovering/Resolving]
  - Renal failure [Recovering/Resolving]
  - Incorrect route of drug administration [Recovered/Resolved]
  - Drug abuse [Recovering/Resolving]
